FAERS Safety Report 22153513 (Version 3)
Quarter: 2024Q4

REPORT INFORMATION
  Report Type: Spontaneous
  Country: BR (occurrence: BR)
  Receive Date: 20230330
  Receipt Date: 20241005
  Transmission Date: 20250115
  Serious: Yes (Hospitalization, Disabling, Other)
  Sender: CELLTRION
  Company Number: BR-CELLTRION INC.-2023BR006461

PATIENT

DRUGS (2)
  1. INFLIXIMAB [Suspect]
     Active Substance: INFLIXIMAB
     Indication: Ankylosing spondylitis
     Dosage: 6 AMPOULES EVERY 60 DAYS
     Route: 042
     Dates: start: 20221205
  2. INFLIXIMAB [Suspect]
     Active Substance: INFLIXIMAB
     Dosage: 6 AMPOULES EVERY 60 DAYS
     Route: 042
     Dates: start: 20230127

REACTIONS (8)
  - Bedridden [Unknown]
  - Pain [Unknown]
  - Arthralgia [Unknown]
  - Walking aid user [Unknown]
  - Insomnia [Unknown]
  - Fatigue [Unknown]
  - Therapy interrupted [Unknown]
  - Product availability issue [Unknown]

NARRATIVE: CASE EVENT DATE: 20230227
